FAERS Safety Report 7496149-X (Version None)
Quarter: 2011Q2

REPORT INFORMATION
  Report Type: 
  Country: None (occurrence: None)
  Receive Date: 20110523
  Receipt Date: 20110509
  Transmission Date: 20111010
  Serious: Yes (Other)
  Sender: FDA-Public Use
  Company Number: PHHY2011US41482

PATIENT
  Sex: Female

DRUGS (2)
  1. RECLAST [Suspect]
     Dosage: 5 MG, PER YEAR
     Route: 042
  2. RECLAST [Suspect]
     Dosage: 5 MG,
     Route: 042

REACTIONS (4)
  - NECK PAIN [None]
  - BREAST CANCER [None]
  - PAIN IN JAW [None]
  - CHEST PAIN [None]
